FAERS Safety Report 5701063-3 (Version None)
Quarter: 2008Q2

REPORT INFORMATION
  Report Type: 
  Country: None (occurrence: None)
  Receive Date: 20080410
  Receipt Date: 20080407
  Transmission Date: 20081010
  Serious: No
  Sender: FDA-Public Use
  Company Number: US-BAXTER-2008BH002984

PATIENT
  Age: 74 Year
  Sex: Male
  Weight: 89 kg

DRUGS (3)
  1. HEPARIN SODIUM [Suspect]
     Indication: ANTICOAGULANT THERAPY
     Route: 058
     Dates: start: 20071226, end: 20080222
  2. HEPARIN SODIUM [Suspect]
     Route: 058
     Dates: start: 20071226, end: 20080222
  3. ENALAPRIL/HCT [Concomitant]
     Indication: HYPERTENSION
     Route: 048

REACTIONS (6)
  - DYSPNOEA [None]
  - FATIGUE [None]
  - INJECTION SITE BRUISING [None]
  - INJECTION SITE NODULE [None]
  - LACRIMATION INCREASED [None]
  - RHINORRHOEA [None]
